FAERS Safety Report 5085131-8 (Version None)
Quarter: 2006Q3

REPORT INFORMATION
  Report Type: 
  Country: None (occurrence: None)
  Receive Date: 20060817
  Receipt Date: 20060809
  Transmission Date: 20061208
  Serious: Yes (Other)
  Sender: FDA-Public Use
  Company Number: 2006BI007130

PATIENT
  Age: 51 Year
  Sex: Female
  Weight: 61.6892 kg

DRUGS (11)
  1. AVONEX [Suspect]
     Indication: MULTIPLE SCLEROSIS
     Dosage: 30 UG;QW;IM
     Route: 030
     Dates: start: 20010329
  2. AVONEX [Suspect]
     Indication: MULTIPLE SCLEROSIS
     Dosage: 30 UG;QW;IM
     Route: 030
  3. TRAMADOL HCL [Concomitant]
  4. LORCET-HD [Concomitant]
  5. ULTRAM [Concomitant]
  6. ELAVIL [Concomitant]
  7. EFFEXOR [Concomitant]
  8. AMANTADINE HCL [Concomitant]
  9. OXYBUTYNIN [Concomitant]
  10. LESCOL [Concomitant]
  11. EXTREME STRENGHT CAPSULE (NOS) [Concomitant]

REACTIONS (3)
  - CEREBRAL ATROPHY [None]
  - GRAND MAL CONVULSION [None]
  - SECONDARY PROGRESSIVE MULTIPLE SCLEROSIS [None]
